FAERS Safety Report 9297950 (Version 1)
Quarter: 2013Q2

REPORT INFORMATION
  Report Type: Spontaneous
  Country: CN (occurrence: CN)
  Receive Date: 20130520
  Receipt Date: 20130520
  Transmission Date: 20140414
  Serious: No
  Sender: FDA-Public Use
  Company Number: CN-JNJFOC-20130510886

PATIENT
  Age: 73 Year
  Sex: Male

DRUGS (1)
  1. DUROGESIC D-TRANS [Suspect]
     Indication: POST HERPETIC NEURALGIA
     Route: 062
     Dates: start: 20121020, end: 20121021

REACTIONS (5)
  - Hypersensitivity [Recovering/Resolving]
  - Abdominal discomfort [Recovering/Resolving]
  - Nausea [Recovering/Resolving]
  - Vomiting [Recovering/Resolving]
  - Inappropriate schedule of drug administration [Unknown]
